FAERS Safety Report 14546861 (Version 5)
Quarter: 2019Q2

REPORT INFORMATION
  Report Type: Spontaneous
  Country: US (occurrence: US)
  Receive Date: 20180219
  Receipt Date: 20190628
  Transmission Date: 20190711
  Serious: Yes (Hospitalization, Other)
  Sender: FDA-Public Use
  Company Number: US-PFIZER INC-2018063465

PATIENT
  Age: 67 Year
  Sex: Female
  Weight: 84 kg

DRUGS (5)
  1. XELJANZ XR [Suspect]
     Active Substance: TOFACITINIB CITRATE
     Dosage: 11 MG, 2X/DAY
     Route: 048
  2. CYCLOPHOSPHAMIDE. [Concomitant]
     Active Substance: CYCLOPHOSPHAMIDE
     Dosage: UNK
  3. XELJANZ XR [Suspect]
     Active Substance: TOFACITINIB CITRATE
     Indication: RHEUMATOID ARTHRITIS
     Dosage: 11 MG, UNK
     Dates: start: 2015
  4. OTEZLA [Concomitant]
     Active Substance: APREMILAST
     Indication: PSORIATIC ARTHROPATHY
     Dosage: 30 MG, 2X/DAY
     Route: 048
  5. XELJANZ XR [Suspect]
     Active Substance: TOFACITINIB CITRATE
     Dosage: 11 MG, 1X/DAY
     Route: 048

REACTIONS (9)
  - Cerebrovascular accident [Not Recovered/Not Resolved]
  - Memory impairment [Unknown]
  - Therapeutic response unexpected [Recovered/Resolved]
  - Off label use [Recovered/Resolved]
  - Cerebral artery thrombosis [Recovered/Resolved]
  - Cough [Not Recovered/Not Resolved]
  - Respiratory disorder [Not Recovered/Not Resolved]
  - Seizure [Not Recovered/Not Resolved]
  - Pre-existing condition improved [Recovered/Resolved]

NARRATIVE: CASE EVENT DATE: 2018
